FAERS Safety Report 10078650 (Version 2)
Quarter: 2014Q2

REPORT INFORMATION
  Report Type: Spontaneous
  Country: US (occurrence: US)
  Receive Date: 20140415
  Receipt Date: 20140630
  Transmission Date: 20141212
  Serious: No
  Sender: FDA-Public Use
  Company Number: US-009507513-1404USA006149

PATIENT
  Sex: Female
  Weight: 58.5 kg

DRUGS (7)
  1. OXYTROL FOR WOMEN [Suspect]
     Indication: MICTURITION URGENCY
     Dosage: UNK, QD
     Route: 062
     Dates: start: 201401, end: 20140413
  2. OXYTROL FOR WOMEN [Suspect]
     Indication: URINARY INCONTINENCE
     Dosage: UNK, QD
     Route: 062
     Dates: start: 201401, end: 20140413
  3. HYDROCHLOROTHIAZIDE [Concomitant]
     Indication: HYPERTENSION
     Dosage: UNK, UNKNOWN
  4. AVAPRO [Concomitant]
     Indication: HYPERTENSION
     Dosage: UNK, UNKNOWN
  5. NORVASC [Concomitant]
     Indication: HYPERTENSION
     Dosage: UNK, UNKNOWN
  6. CALCIUM (UNSPECIFIED) [Concomitant]
     Indication: PRODUCT USED FOR UNKNOWN INDICATION
     Dosage: UNK, UNKNOWN
  7. OMEGA-3 MARINE TRIGLYCERIDES [Concomitant]
     Indication: PRODUCT USED FOR UNKNOWN INDICATION
     Dosage: UNK, UNKNOWN

REACTIONS (3)
  - Gastrointestinal disorder [Unknown]
  - Rash [Recovered/Resolved]
  - Skin irritation [Recovered/Resolved]
